FAERS Safety Report 13384360 (Version 1)
Quarter: 2017Q1

REPORT INFORMATION
  Report Type: Spontaneous
  Country: US (occurrence: US)
  Receive Date: 20170329
  Receipt Date: 20170329
  Transmission Date: 20170429
  Serious: Yes (Other)
  Sender: FDA-Public Use
  Company Number: None

PATIENT
  Age: 64 Year
  Sex: Male
  Weight: 109.1 kg

DRUGS (1)
  1. ACETAMINOPHEN/HYDROCODONE [Suspect]
     Active Substance: ACETAMINOPHEN\HYDROCODONE
     Indication: PAIN
     Dosage: DOSE AMOUNT - 7.5/500 MG?FREQUENCY - OTHER
     Route: 048
     Dates: start: 20110329, end: 20110401

REACTIONS (4)
  - Diarrhoea [None]
  - Head discomfort [None]
  - Nausea [None]
  - Product quality issue [None]

NARRATIVE: CASE EVENT DATE: 20110321
